FAERS Safety Report 7526005-X (Version None)
Quarter: 2011Q2

REPORT INFORMATION
  Report Type: 
  Country: None (occurrence: None)
  Receive Date: 20110606
  Receipt Date: 20110523
  Transmission Date: 20111010
  Serious: Yes (Hospitalization)
  Sender: FDA-Public Use
  Company Number: US-CELGENEUS-163-21880-11053044

PATIENT
  Sex: Female
  Weight: 68.8 kg

DRUGS (36)
  1. PLATELETS [Concomitant]
     Dosage: 2 UNITS
     Route: 051
     Dates: start: 20110511, end: 20110511
  2. AUGMENTIN '125' [Concomitant]
     Indication: PAROTITIS
     Route: 065
     Dates: start: 20110101
  3. FEOSOL [Concomitant]
     Indication: PANCYTOPENIA
     Dosage: 325 MILLIGRAM
     Route: 048
  4. TOPROL-XL [Concomitant]
     Dosage: 50 MILLIGRAM
     Route: 048
  5. VICODIN [Concomitant]
     Dosage: 5-500MG
     Route: 048
  6. REVLIMID [Suspect]
     Dosage: 50 MILLIGRAM
     Route: 048
     Dates: start: 20110318
  7. OXYGEN [Concomitant]
     Dosage: 2 LITERS
     Route: 045
     Dates: start: 20110501
  8. LASIX [Concomitant]
     Dosage: 10 MILLIGRAM
     Route: 051
     Dates: start: 20110522, end: 20110522
  9. K-TAB [Concomitant]
     Dosage: 10 MILLIEQUIVALENTS
     Route: 048
  10. SODIUM CHLORIDE [Concomitant]
     Dosage: 500 MILLILITER
     Route: 051
  11. ZOFRAN [Concomitant]
     Dosage: 4 MILLIGRAM
     Route: 051
  12. AMBIEN [Concomitant]
     Dosage: 5 MILLIGRAM
     Route: 048
  13. TRAZODONE HCL [Concomitant]
     Dosage: 25 MILLIGRAM
     Route: 048
  14. OCEAN [Concomitant]
     Dosage: 2-3 SPRAYS
     Route: 045
  15. PNEUMOCOCCAL POLYVALENT [Suspect]
     Route: 065
     Dates: start: 20110413, end: 20110413
  16. LANOXIN [Concomitant]
     Dosage: .125 MILLIGRAM
     Route: 048
  17. CRESTOR [Concomitant]
     Dosage: 10 MILLIGRAM
     Route: 048
  18. AMICAR [Concomitant]
     Dosage: 1 GRAM
     Route: 051
  19. MILK OF MAGNESIA TAB [Concomitant]
     Indication: CONSTIPATION
     Route: 065
     Dates: start: 20110501
  20. FOLTX [Concomitant]
     Route: 048
  21. ATIVAN [Concomitant]
     Dosage: 1 MILLIGRAM
     Route: 048
  22. PLATELETS [Concomitant]
     Indication: THROMBOCYTOPENIA
     Dosage: 2 UNITS
     Route: 051
     Dates: start: 20110514, end: 20110514
  23. ZOVIRAX [Concomitant]
     Dosage: 800 MILLIGRAM
     Route: 048
  24. MAXIPIME [Concomitant]
     Dosage: 2 GRAM
     Route: 051
  25. PLATELETS [Concomitant]
     Dosage: 1 UNIT
     Route: 051
     Dates: start: 20110501, end: 20110501
  26. LASIX [Concomitant]
     Dosage: 20 MILLIGRAM
     Route: 048
  27. RED BLOOD CELLS [Concomitant]
     Dosage: 2 UNITS
     Route: 051
     Dates: start: 20110512, end: 20110512
  28. AZACITIDINE [Suspect]
     Route: 065
     Dates: start: 20110318
  29. LAXATIVE [Concomitant]
     Indication: CONSTIPATION
     Route: 065
     Dates: start: 20110501
  30. DEXTROSE [Concomitant]
     Dosage: 100 MILLILITER
     Route: 051
  31. MENINGOCOCCAL POLYSACCHARIDE [Suspect]
     Route: 030
     Dates: start: 20110412, end: 20110412
  32. LEVAQUIN [Concomitant]
     Dosage: 750 MILLIGRAM
     Route: 051
  33. TYLENOL-500 [Concomitant]
     Dosage: 650 MILLIGRAM
     Route: 048
  34. PROTONIX [Concomitant]
     Indication: THROMBOCYTOPENIA
     Dosage: 40 MILLIGRAM
     Route: 048
  35. BENADRYL [Concomitant]
     Dosage: 25 MILLIGRAM
     Route: 048
  36. RED BLOOD CELLS [Concomitant]
     Dosage: 1 UNIT
     Route: 051
     Dates: start: 20110515, end: 20110515

REACTIONS (3)
  - ASTHENIA [None]
  - ATRIAL FIBRILLATION [None]
  - ANXIETY [None]
